FAERS Safety Report 25574802 (Version 1)
Quarter: 2025Q3

REPORT INFORMATION
  Report Type: Spontaneous
  Country: OM (occurrence: OM)
  Receive Date: 20250718
  Receipt Date: 20250718
  Transmission Date: 20251020
  Serious: Yes (Other)
  Sender: AMNEAL
  Company Number: OM-AMNEAL PHARMACEUTICALS-2025-AMRX-02649

PATIENT
  Age: 68 Year
  Sex: Male

DRUGS (1)
  1. ALYMSYS [Suspect]
     Active Substance: BEVACIZUMAB-MALY
     Indication: Corneal neovascularisation
     Route: 021

REACTIONS (4)
  - Ulcerative keratitis [Recovered/Resolved with Sequelae]
  - Blepharitis [Recovered/Resolved with Sequelae]
  - Conjunctival hyperaemia [Recovered/Resolved with Sequelae]
  - Corneal disorder [Recovered/Resolved with Sequelae]
